FAERS Safety Report 9778762 (Version 2)
Quarter: 2013Q4

REPORT INFORMATION
  Report Type: Spontaneous
  Country: RU (occurrence: RU)
  Receive Date: 20131223
  Receipt Date: 20131223
  Transmission Date: 20140711
  Serious: Yes (Hospitalization)
  Sender: FDA-Public Use
  Company Number: RU-PFIZER INC-2013338697

PATIENT
  Age: 68 Year
  Sex: Male

DRUGS (1)
  1. LIPRIMAR [Suspect]
     Indication: PERIPHERAL ARTERIAL OCCLUSIVE DISEASE
     Dosage: 20 MG, 1X/DAY
     Route: 048
     Dates: start: 2008, end: 201311

REACTIONS (1)
  - Respiratory tract infection [Unknown]
